FAERS Safety Report 14710521 (Version 1)
Quarter: 2018Q2

REPORT INFORMATION
  Report Type: Spontaneous
  Country: US (occurrence: US)
  Receive Date: 20180403
  Receipt Date: 20180403
  Transmission Date: 20180711
  Serious: No
  Sender: FDA-Public Use
  Company Number: US-ROCHE-2063956

PATIENT
  Sex: Female
  Weight: 63.56 kg

DRUGS (2)
  1. KADCYLA [Suspect]
     Active Substance: ADO-TRASTUZUMAB EMTANSINE
     Indication: LYMPHOMA
     Dosage: THROUGH PORT ;ONGOING: YES
     Route: 065
     Dates: start: 201702
  2. XGEVA [Concomitant]
     Active Substance: DENOSUMAB
     Dosage: ONGOING:YES
     Route: 065

REACTIONS (3)
  - Intentional product use issue [Unknown]
  - Off label use [Unknown]
  - Alopecia [Unknown]
